FAERS Safety Report 10041562 (Version 1)
Quarter: 2014Q1

REPORT INFORMATION
  Report Type: Spontaneous
  Country: JP (occurrence: JP)
  Receive Date: 20140327
  Receipt Date: 20140327
  Transmission Date: 20141002
  Serious: Yes (Disabling, Other)
  Sender: FDA-Public Use
  Company Number: JP-ASTRAZENECA-2014SE19513

PATIENT
  Sex: Female

DRUGS (3)
  1. ANAPEINE [Suspect]
     Indication: POSTOPERATIVE ANALGESIA
     Route: 008
     Dates: start: 20140314, end: 20140316
  2. FENTANYL [Concomitant]
     Indication: POSTOPERATIVE ANALGESIA
     Route: 008
  3. ISOTONIC SODIUM CHLORIDE SOLUTION [Concomitant]
     Indication: POSTOPERATIVE ANALGESIA
     Dosage: 76 ML AT A RATE OF 4 CC/H WITH PATIENT CONTROLLED ANALGESIA AT 3 CC/30 MIN
     Route: 008

REACTIONS (1)
  - Monoplegia [Recovering/Resolving]
